FAERS Safety Report 5268929-2 (Version None)
Quarter: 2007Q1

REPORT INFORMATION
  Report Type: 
  Country: None (occurrence: None)
  Receive Date: 20061214
  Receipt Date: 20060510
  Transmission Date: 20070707
  Serious: Yes (Other)
  Sender: FDA-Public Use
  Company Number: 2006062534

PATIENT
  Sex: Male
  Weight: 102.0593 kg

DRUGS (3)
  1. XANAX [Suspect]
     Indication: ANXIETY
     Dosage: 1.5 MG (0.5 MG, 3 IN 1 D)
     Dates: start: 20060808
  2. XANAX [Suspect]
     Indication: PANIC ATTACK
     Dosage: 1.5 MG (0.5 MG, 3 IN 1 D)
     Dates: start: 20060808
  3. PAXIL [Concomitant]

REACTIONS (11)
  - ANXIETY [None]
  - AUTOIMMUNE THYROIDITIS [None]
  - DEAFNESS [None]
  - DRUG DEPENDENCE [None]
  - EAR DISCOMFORT [None]
  - FATIGUE [None]
  - FIBROMYALGIA [None]
  - OEDEMA PERIPHERAL [None]
  - PANIC ATTACK [None]
  - PHOTOPHOBIA [None]
  - VISUAL ACUITY REDUCED [None]
